FAERS Safety Report 11375039 (Version 1)
Quarter: 2015Q3

REPORT INFORMATION
  Report Type: Spontaneous
  Country: TR (occurrence: TR)
  Receive Date: 20150813
  Receipt Date: 20150813
  Transmission Date: 20151125
  Serious: Yes (Hospitalization)
  Sender: FDA-Public Use
  Company Number: TR-SUN PHARMACEUTICAL INDUSTRIES LTD-2015R1-101172

PATIENT
  Age: 14 Month
  Sex: Female

DRUGS (3)
  1. PHENYTOIN. [Suspect]
     Active Substance: PHENYTOIN
     Indication: MYOCLONIC EPILEPSY
     Dosage: UNK
     Route: 065
  2. MIDAZOLAM [Suspect]
     Active Substance: MIDAZOLAM\MIDAZOLAM HYDROCHLORIDE
     Indication: MYOCLONIC EPILEPSY
     Dosage: UNK
     Route: 040
  3. LEVETIRACETAM. [Suspect]
     Active Substance: LEVETIRACETAM
     Indication: MYOCLONIC EPILEPSY
     Dosage: UNK
     Route: 065

REACTIONS (1)
  - Treatment failure [Unknown]
